FAERS Safety Report 6894423-9 (Version None)
Quarter: 2010Q3

REPORT INFORMATION
  Report Type: 
  Country: None (occurrence: None)
  Receive Date: 20100727
  Receipt Date: 20100715
  Transmission Date: 20110219
  Serious: Yes (Death)
  Sender: FDA-Public Use
  Company Number: 000492

PATIENT
  Age: 81 Year
  Sex: Female

DRUGS (31)
  1. VIMPAT [Suspect]
     Indication: STATUS EPILEPTICUS
     Dosage: (200 MG QD INTRAVENOUS), (300 MG, 100MG + 200 MG DAILY INTRAVENOUS), (200 MG BID INTRAVENOUS)
     Route: 042
     Dates: start: 20090220, end: 20090220
  2. VIMPAT [Suspect]
     Indication: STATUS EPILEPTICUS
     Dosage: (200 MG QD INTRAVENOUS), (300 MG, 100MG + 200 MG DAILY INTRAVENOUS), (200 MG BID INTRAVENOUS)
     Route: 042
     Dates: start: 20090221, end: 20090222
  3. VIMPAT [Suspect]
     Indication: STATUS EPILEPTICUS
     Dosage: (200 MG QD INTRAVENOUS), (300 MG, 100MG + 200 MG DAILY INTRAVENOUS), (200 MG BID INTRAVENOUS)
     Route: 042
     Dates: start: 20090223, end: 20090226
  4. KEPPRA [Suspect]
     Indication: STATUS EPILEPTICUS
     Dosage: SEE IMAGE
     Dates: start: 20090217, end: 20090217
  5. KEPPRA [Suspect]
     Indication: STATUS EPILEPTICUS
     Dosage: SEE IMAGE
     Dates: start: 20090221, end: 20090221
  6. KEPPRA [Suspect]
     Indication: STATUS EPILEPTICUS
     Dosage: SEE IMAGE
     Dates: start: 20090218, end: 20090222
  7. KEPPRA [Suspect]
     Indication: STATUS EPILEPTICUS
     Dosage: SEE IMAGE
     Dates: start: 20090222, end: 20090226
  8. KEPPRA [Suspect]
     Indication: STATUS EPILEPTICUS
     Dosage: SEE IMAGE
     Dates: start: 20090226, end: 20090227
  9. CEFTRIAXONE [Suspect]
     Indication: INFECTION
     Dosage: (2 G QD INTRAVENOUS)
     Route: 042
     Dates: start: 20090131, end: 20090209
  10. CIPROBAY /00697201/ (CIPROBAY) (NOT SPECIFIED) [Suspect]
     Indication: INFECTION
     Dosage: (500 MG BID ORAL)
     Route: 048
     Dates: start: 20090204, end: 20090216
  11. ROXITHROMYCINE (ROXITHROMYCINE) [Suspect]
     Indication: INFECTION
     Dosage: (300 MG QD ORAL)
     Route: 048
     Dates: start: 20090209, end: 20090216
  12. ERGENYL (ERGENYL) (NOT SPECIFIED) [Suspect]
     Indication: CONVULSION
     Dosage: (1200 MG QD INTRAVENOUS), (800 MG QD INTRAVENOUS), (500 MG QD ORAL), (500 MG BID ORAL)
     Dates: start: 20090211, end: 20090212
  13. ERGENYL (ERGENYL) (NOT SPECIFIED) [Suspect]
     Indication: CONVULSION
     Dosage: (1200 MG QD INTRAVENOUS), (800 MG QD INTRAVENOUS), (500 MG QD ORAL), (500 MG BID ORAL)
     Dates: start: 20090215, end: 20090215
  14. ERGENYL (ERGENYL) (NOT SPECIFIED) [Suspect]
     Indication: CONVULSION
     Dosage: (1200 MG QD INTRAVENOUS), (800 MG QD INTRAVENOUS), (500 MG QD ORAL), (500 MG BID ORAL)
     Dates: start: 20090215, end: 20090215
  15. ERGENYL (ERGENYL) (NOT SPECIFIED) [Suspect]
     Indication: CONVULSION
     Dosage: (1200 MG QD INTRAVENOUS), (800 MG QD INTRAVENOUS), (500 MG QD ORAL), (500 MG BID ORAL)
     Dates: start: 20090216, end: 20090217
  16. ORFIRIL /00228501/ (ORFIRIL LONG) (NOT SPECIFIED) [Suspect]
     Indication: CONVULSION
     Dosage: (300 MG QD ORAL), (300 MG BID ORAL)
     Route: 048
     Dates: start: 20090213, end: 20090213
  17. ORFIRIL /00228501/ (ORFIRIL LONG) (NOT SPECIFIED) [Suspect]
     Indication: CONVULSION
     Dosage: (300 MG QD ORAL), (300 MG BID ORAL)
     Route: 048
     Dates: start: 20090214, end: 20090215
  18. PHENHYDAN /00017401/ (PHENHYDAN) (NOT SPECIFIED) [Suspect]
     Indication: STATUS EPILEPTICUS
     Dosage: (750 MG QD INTRAVENOUS), (100 MG TID ORAL), (750 MG QD INTRAVENOUS)
     Dates: start: 20090216, end: 20090218
  19. PHENHYDAN /00017401/ (PHENHYDAN) (NOT SPECIFIED) [Suspect]
     Indication: STATUS EPILEPTICUS
     Dosage: (750 MG QD INTRAVENOUS), (100 MG TID ORAL), (750 MG QD INTRAVENOUS)
     Dates: start: 20090219, end: 20090222
  20. PHENHYDAN /00017401/ (PHENHYDAN) (NOT SPECIFIED) [Suspect]
     Indication: STATUS EPILEPTICUS
     Dosage: (750 MG QD INTRAVENOUS), (100 MG TID ORAL), (750 MG QD INTRAVENOUS)
     Dates: start: 20090222, end: 20090226
  21. MERONEM /01250501/ (MERONEM) (NOT SPECIFIED) [Suspect]
     Indication: INFECTION
     Dosage: (500 MG QD INTRAVENOUS), (500 MG TID INTRAVENOUS)
     Route: 042
     Dates: start: 20090216, end: 20090216
  22. MERONEM /01250501/ (MERONEM) (NOT SPECIFIED) [Suspect]
     Indication: INFECTION
     Dosage: (500 MG QD INTRAVENOUS), (500 MG TID INTRAVENOUS)
     Route: 042
     Dates: start: 20090217, end: 20090223
  23. PIPRIL (PIPRIL) (NOT SPECIFIED) [Suspect]
     Indication: INFECTION
     Dosage: (4 G TID INTRAVENOUS)
     Route: 042
     Dates: start: 20090225, end: 20090227
  24. COMBACTAM (COMBACTAM) [Suspect]
     Indication: INFECTION
     Dosage: (1 G TID INTRAVENOUS)
     Route: 042
     Dates: start: 20090225, end: 20090227
  25. ASPIRIN [Concomitant]
  26. AMLODIPINE [Concomitant]
  27. METOHEXAL /00376902/ [Concomitant]
  28. NEXIUM [Concomitant]
  29. BENALAPRIL [Concomitant]
  30. ESIDRIX [Concomitant]
  31. FRISIUM [Concomitant]

REACTIONS (3)
  - INFECTION [None]
  - PROTHROMBIN TIME PROLONGED [None]
  - TRANSAMINASES INCREASED [None]
